FAERS Safety Report 5431766-X (Version None)
Quarter: 2007Q3

REPORT INFORMATION
  Report Type: 
  Country: None (occurrence: None)
  Receive Date: 20070830
  Receipt Date: 20070820
  Transmission Date: 20080115
  Serious: Yes (Hospitalization)
  Sender: FDA-Public Use
  Company Number: DE-SHR-DE-2005-018238

PATIENT
  Age: 51 Year
  Sex: Female

DRUGS (3)
  1. BETAFERON [Suspect]
     Indication: RELAPSING-REMITTING MULTIPLE SCLEROSIS
     Dosage: 8 OR 16 MIU, EVERY 2D
     Route: 058
     Dates: start: 20050127
  2. IBUPROFEN [Concomitant]
     Dosage: 400 MG, AS REQ'D
     Dates: start: 20050127, end: 20050312
  3. IBUPROFEN [Concomitant]
     Dosage: 400 MG, AS REQ'D
     Route: 048
     Dates: start: 20050323

REACTIONS (2)
  - EMBOLIC STROKE [None]
  - LOSS OF CONSCIOUSNESS [None]
